FAERS Safety Report 5702374-8 (Version None)
Quarter: 2008Q2

REPORT INFORMATION
  Report Type: 
  Country: None (occurrence: None)
  Receive Date: 20080411
  Receipt Date: 20080401
  Transmission Date: 20081010
  Serious: Yes (Hospitalization)
  Sender: FDA-Public Use
  Company Number: DE-BRISTOL-MYERS SQUIBB COMPANY-14140396

PATIENT
  Age: 71 Year
  Sex: Male
  Weight: 62 kg

DRUGS (2)
  1. ERBITUX [Suspect]
     Indication: COLORECTAL CANCER METASTATIC
     Dosage: 250 MG/M2 1 IN 1 WK; IV; 22-OCT-2007-ONGOING; DISCONTINUED ON 22-JAN-2008
     Route: 042
     Dates: start: 20070924, end: 20080122
  2. IRINOTECAN HCL [Suspect]
     Indication: COLORECTAL CANCER METASTATIC
     Route: 042
     Dates: start: 20070924

REACTIONS (2)
  - SOMNOLENCE [None]
  - STOMATITIS [None]
